FAERS Safety Report 8188171-5 (Version None)
Quarter: 2012Q1

REPORT INFORMATION
  Report Type: 
  Country: None (occurrence: None)
  Receive Date: 20120306
  Receipt Date: 20120228
  Transmission Date: 20120608
  Serious: Yes (Hospitalization, Other)
  Sender: FDA-Public Use
  Company Number: JP-PFIZER INC-2012033710

PATIENT
  Age: 87 Year
  Sex: Female
  Weight: 48 kg

DRUGS (16)
  1. XYZAL [Suspect]
     Indication: HYPERSENSITIVITY
     Dosage: 5 MG, 1X/DAY
     Route: 048
     Dates: start: 20110322
  2. GASMOTIN [Concomitant]
     Indication: GASTROOESOPHAGEAL REFLUX DISEASE
     Dosage: 5 G, 2X/DAY
     Route: 048
     Dates: start: 20110322
  3. LYRICA [Suspect]
     Indication: POST HERPETIC NEURALGIA
     Dosage: 75 MG, 2X/DAY
     Route: 048
     Dates: start: 20120118, end: 20120212
  4. FAMOTIDINE [Concomitant]
     Indication: GASTRITIS
     Dosage: 20 MG, 2X/DAY
     Route: 048
     Dates: start: 20110322
  5. YODEL [Concomitant]
     Indication: CONSTIPATION
     Dosage: (3 DF) 240 MG, 1X/DAY
     Route: 048
     Dates: start: 20110322
  6. GASCON [Concomitant]
     Indication: ABDOMINAL DISTENSION
     Dosage: 80 MG, 3X/DAY
     Route: 048
     Dates: start: 20110322
  7. CLARITHROMYCIN [Concomitant]
     Dosage: 200 MG, 2X/DAY
     Route: 048
  8. PREDNISOLONE [Suspect]
     Dosage: UNK
     Dates: start: 20120118, end: 20120101
  9. DIART [Concomitant]
     Indication: ASCITES
     Dosage: 30 MG, 1X/DAY
     Route: 048
     Dates: start: 20110322
  10. LACTULOSE [Concomitant]
     Indication: HEPATIC ENCEPHALOPATHY
     Dosage: 10 ML, 3X/DAY
     Route: 048
     Dates: start: 20110322
  11. URSO 250 [Concomitant]
     Indication: HEPATIC CIRRHOSIS
     Dosage: 200 MG, 3X/DAY
     Route: 048
     Dates: start: 20110322
  12. ALDACTONE [Concomitant]
     Indication: ASCITES
     Dosage: 25 MG, 2X/DAY
     Route: 048
     Dates: start: 20110322
  13. MAGNESIUM OXIDE [Concomitant]
     Indication: CONSTIPATION
     Dosage: 1 G, 3X/DAY
     Route: 048
     Dates: start: 20110322
  14. MONTELUKAST SODIUM [Concomitant]
     Dosage: 10MG DAILY
     Route: 048
  15. ALLOPURINOL [Concomitant]
     Indication: BLOOD URIC ACID
     Dosage: 100 MG, 2X/DAY
     Route: 048
     Dates: start: 20110322
  16. ENSURE [Concomitant]
     Indication: DECREASED APPETITE
     Dosage: 250 ML, 1X/DAY
     Route: 048
     Dates: start: 20110222

REACTIONS (4)
  - URINARY INCONTINENCE [None]
  - GAIT DISTURBANCE [None]
  - FAECAL INCONTINENCE [None]
  - OEDEMA [None]
